FAERS Safety Report 8532934-0 (Version None)
Quarter: 2012Q3

REPORT INFORMATION
  Report Type: 
  Country: None (occurrence: None)
  Receive Date: 20120711
  Receipt Date: 20120626
  Transmission Date: 20120928
  Serious: Yes (Other)
  Sender: FDA-Public Use
  Company Number: FK201201836

PATIENT
  Age: 24 Year
  Sex: Female

DRUGS (4)
  1. IDARUBICIN HYDROCHLORIDE [Suspect]
     Indication: ACUTE MYELOID LEUKAEMIA
  2. PEGFILGRASTIM (PEGFILGRASTIM) [Concomitant]
  3. ETOPOSIDE [Suspect]
     Indication: ACUTE MYELOID LEUKAEMIA
  4. CYTARABINE [Suspect]
     Indication: ACUTE MYELOID LEUKAEMIA

REACTIONS (11)
  - PATHOGEN RESISTANCE [None]
  - ZYGOMYCOSIS [None]
  - ASPERGILLUS TEST POSITIVE [None]
  - STEM CELL TRANSPLANT [None]
  - NEUTROPENIC SEPSIS [None]
  - ESCHERICHIA BACTERAEMIA [None]
  - PULMONARY ALVEOLAR HAEMORRHAGE [None]
  - APLASIA [None]
  - RESPIRATORY FAILURE [None]
  - STAPHYLOCOCCAL BACTERAEMIA [None]
  - BONE MARROW FAILURE [None]
